FAERS Safety Report 10695889 (Version 1)
Quarter: 2015Q1

REPORT INFORMATION
  Report Type: Spontaneous
  Country: DE (occurrence: None)
  Receive Date: 20150105
  Receipt Date: 20150105
  Transmission Date: 20150721
  Serious: Yes (Congenital Anomaly)
  Sender: FDA-Public Use
  Company Number: 2692894

PATIENT
  Sex: Male

DRUGS (3)
  1. (TRASTUZUMAB) [Suspect]
     Active Substance: TRASTUZUMAB
     Route: 064
  2. (DOCETAXEL) [Suspect]
     Active Substance: DOCETAXEL
     Route: 064
  3. (CARBOPLATIN) [Suspect]
     Active Substance: CARBOPLATIN
     Indication: PRODUCT USED FOR UNKNOWN INDICATION
     Dosage: AUC 6, 1 DAY
     Route: 064

REACTIONS (3)
  - Foetal growth restriction [None]
  - Foetal disorder [None]
  - Renal failure [None]
